FAERS Safety Report 16304297 (Version 1)
Quarter: 2019Q2

REPORT INFORMATION
  Report Type: Spontaneous
  Country: CN (occurrence: CN)
  Receive Date: 20190513
  Receipt Date: 20190513
  Transmission Date: 20190711
  Serious: Yes (Other)
  Sender: FDA-Public Use
  Company Number: CN-PFIZER INC-2019196948

PATIENT
  Age: 53 Year
  Sex: Male

DRUGS (2)
  1. DAUNORUBICIN HCL [Suspect]
     Active Substance: DAUNORUBICIN HYDROCHLORIDE
     Indication: CHEMOTHERAPY
     Dosage: 80 MG, CYCLIC (D1-D3)
     Dates: start: 20110521
  2. CYTARABINE. [Suspect]
     Active Substance: CYTARABINE
     Indication: CHEMOTHERAPY
     Dosage: 0.1 G, CYCLIC (D1-D7)
     Dates: start: 20110521

REACTIONS (1)
  - Bone marrow failure [Recovering/Resolving]
